FAERS Safety Report 4723184-4 (Version None)
Quarter: 2005Q3

REPORT INFORMATION
  Report Type: 
  Country: None (occurrence: None)
  Receive Date: 20050719
  Receipt Date: 20040820
  Transmission Date: 20060218
  Serious: Yes (Hospitalization)
  Sender: FDA-Public Use
  Company Number: 2004231201US

PATIENT
  Age: 47 Year
  Sex: Female

DRUGS (11)
  1. CELEBREX [Suspect]
     Dosage: 200 MG, BID, ORAL
     Route: 048
     Dates: start: 19990329
  2. PREVACID [Concomitant]
  3. DARVOCET-N (DEXTROPROPOXYPHENE NAPSILATE) [Concomitant]
  4. METHOTREXATE [Concomitant]
  5. PLAQUENIL [Concomitant]
  6. FLEXERIL [Concomitant]
  7. COLACE (DOCUSATE SODIUM) [Concomitant]
  8. ELAVIL [Concomitant]
  9. ETANERCEPT (ETANERCEPT) [Concomitant]
  10. NEURONTIN [Concomitant]
  11. FOLIC ACID [Concomitant]

REACTIONS (2)
  - GASTROINTESTINAL HAEMORRHAGE [None]
  - PANCREATITIS [None]
